FAERS Safety Report 5245526-6 (Version None)
Quarter: 2007Q1

REPORT INFORMATION
  Report Type: 
  Country: None (occurrence: None)
  Receive Date: 20070223
  Receipt Date: 20070209
  Transmission Date: 20070707
  Serious: Yes (Other)
  Sender: FDA-Public Use
  Company Number: US-AMGEN-US204492

PATIENT
  Sex: Male
  Weight: 92.2 kg

DRUGS (11)
  1. ENBREL [Suspect]
     Indication: PSORIATIC ARTHROPATHY
     Route: 065
     Dates: start: 20000711
  2. VIOXX [Concomitant]
     Route: 065
     Dates: end: 20041221
  3. ACIPHEX [Concomitant]
     Route: 065
     Dates: end: 20041221
  4. COZAAR [Concomitant]
     Route: 065
  5. HYDROCHLOROTHIAZIDE [Concomitant]
     Route: 065
  6. BEXTRA [Concomitant]
     Route: 065
  7. OMEPRAZOLE [Concomitant]
     Route: 065
  8. LIPITOR [Concomitant]
     Route: 065
  9. METFORMIN HCL [Concomitant]
     Route: 065
  10. ULTRACET [Concomitant]
     Dates: end: 20041221
  11. ALEVE [Concomitant]

REACTIONS (2)
  - MENIERE'S DISEASE [None]
  - SUDDEN HEARING LOSS [None]
